FAERS Safety Report 5166529-6 (Version None)
Quarter: 2006Q4

REPORT INFORMATION
  Report Type: 
  Country: None (occurrence: None)
  Receive Date: 20061129
  Receipt Date: 20061114
  Transmission Date: 20070319
  Serious: Yes (Hospitalization, Other)
  Sender: FDA-Public Use
  Company Number: 2006SP006458

PATIENT
  Age: 59 Year
  Sex: Female
  Weight: 60 kg

DRUGS (5)
  1. NOXAFIL [Suspect]
     Indication: PNEUMONIA FUNGAL
     Dosage: SEE IMAGE
     Dates: start: 20060701, end: 20060701
  2. NOXAFIL [Suspect]
     Indication: PNEUMONIA FUNGAL
     Dosage: SEE IMAGE
     Dates: start: 20061015, end: 20061028
  3. CITALOSTAD [Concomitant]
  4. APREDNISLON [Concomitant]
  5. PANTOPRAZOL [Concomitant]

REACTIONS (3)
  - CONFUSIONAL STATE [None]
  - PARANOIA [None]
  - PSYCHOTIC DISORDER [None]
